FAERS Safety Report 11029687 (Version 1)
Quarter: 2015Q1

REPORT INFORMATION
  Report Type: Spontaneous
  Country: US (occurrence: None)
  Receive Date: 20150205
  Receipt Date: 20150205
  Transmission Date: 20150721
  Serious: Yes (Other)
  Sender: FDA-Public Use
  Company Number: 201501172

PATIENT
  Age: 59 Year
  Sex: Male

DRUGS (1)
  1. TESTIM [Suspect]
     Active Substance: TESTOSTERONE
     Route: 062

REACTIONS (2)
  - Deep vein thrombosis [None]
  - Thrombosis [None]

NARRATIVE: CASE EVENT DATE: 20100420
